FAERS Safety Report 18864326 (Version 5)
Quarter: 2021Q1

REPORT INFORMATION
  Report Type: Spontaneous
  Country: GR (occurrence: GR)
  Receive Date: 20210208
  Receipt Date: 20210309
  Transmission Date: 20210420
  Serious: Yes (Life-Threatening, Hospitalization, Other)
  Sender: FDA-Public Use
  Company Number: GR-ELI_LILLY_AND_COMPANY-GR202102000918

PATIENT
  Age: 55 Year
  Sex: Male

DRUGS (11)
  1. ZYPADHERA [Suspect]
     Active Substance: OLANZAPINE PAMOATE
     Indication: BIPOLAR DISORDER
     Dosage: 300 MG, MONTHLY (1/M)
     Route: 030
     Dates: start: 2017
  2. ZYPADHERA [Suspect]
     Active Substance: OLANZAPINE PAMOATE
     Indication: BIPOLAR DISORDER
     Dosage: 300 MG, MONTHLY (1/M)
     Route: 030
     Dates: start: 2017
  3. OLANZAPINE. [Suspect]
     Active Substance: OLANZAPINE
     Indication: MANIA
  4. CLOPIXOL (HYDROCHLORIDE) [Suspect]
     Active Substance: ZUCLOPENTHIXOL HYDROCHLORIDE
     Indication: BIPOLAR DISORDER
     Dosage: 200 MG, MONTHLY (1/M)
     Route: 065
     Dates: start: 2017
  5. ZYPADHERA [Suspect]
     Active Substance: OLANZAPINE PAMOATE
     Indication: BIPOLAR DISORDER
     Dosage: 300 MG, MONTHLY (1/M)
     Route: 030
     Dates: start: 2017
  6. CLOPIXOL (HYDROCHLORIDE) [Suspect]
     Active Substance: ZUCLOPENTHIXOL HYDROCHLORIDE
     Dosage: 200 MG, 2/M
     Route: 065
     Dates: start: 2020, end: 202101
  7. ZYPADHERA [Suspect]
     Active Substance: OLANZAPINE PAMOATE
     Dosage: 300 MG, 2/M
     Route: 030
     Dates: start: 2020, end: 202101
  8. OLANZAPINE. [Suspect]
     Active Substance: OLANZAPINE
     Indication: IRRITABILITY
  9. ZYPADHERA [Suspect]
     Active Substance: OLANZAPINE PAMOATE
     Dosage: 300 MG, 2/M
     Route: 030
     Dates: start: 2020, end: 202101
  10. ZYPADHERA [Suspect]
     Active Substance: OLANZAPINE PAMOATE
     Dosage: 300 MG, 2/M
     Route: 030
     Dates: start: 2020, end: 202101
  11. OLANZAPINE. [Suspect]
     Active Substance: OLANZAPINE
     Indication: INSOMNIA
     Dosage: 20 MG, EACH EVENING
     Route: 048

REACTIONS (18)
  - Acute lung injury [Recovered/Resolved]
  - Insomnia [Unknown]
  - Gastrooesophageal reflux disease [Recovered/Resolved]
  - Inappropriate schedule of product administration [Unknown]
  - Vomiting [Recovered/Resolved]
  - Mania [Unknown]
  - Toxicity to various agents [Recovered/Resolved]
  - Ileus paralytic [Recovered/Resolved]
  - Post-injection delirium sedation syndrome [Not Recovered/Not Resolved]
  - Depressed level of consciousness [Not Recovered/Not Resolved]
  - Nervous system disorder [Recovered/Resolved]
  - Off label use [Unknown]
  - Fall [Unknown]
  - Tremor [Unknown]
  - Acute respiratory distress syndrome [Recovered/Resolved]
  - Salivary hypersecretion [Unknown]
  - Irritability [Unknown]
  - Overdose [Unknown]

NARRATIVE: CASE EVENT DATE: 2017
